FAERS Safety Report 6130213-2 (Version None)
Quarter: 2009Q1

REPORT INFORMATION
  Report Type: 
  Country: None (occurrence: None)
  Receive Date: 20090324
  Receipt Date: 20090319
  Transmission Date: 20090719
  Serious: Yes (Hospitalization, Disabling)
  Sender: FDA-Public Use
  Company Number: US-KINGPHARMUSA00001-K200801355

PATIENT
  Age: 55 Year
  Sex: Male

DRUGS (2)
  1. ALTACE [Suspect]
     Indication: HYPERTENSION
     Dosage: 10 MG, QD
     Route: 048
     Dates: start: 20020701, end: 20081119
  2. APO-DILTIAZ [Concomitant]
     Dosage: 240 MG, QD
     Dates: start: 19900101, end: 20081119

REACTIONS (13)
  - CHROMATURIA [None]
  - DECREASED APPETITE [None]
  - FAECES PALE [None]
  - FATIGUE [None]
  - HEPATITIS [None]
  - IMPAIRED WORK ABILITY [None]
  - JAUNDICE [None]
  - NAUSEA [None]
  - PRURITUS [None]
  - PYREXIA [None]
  - RASH [None]
  - TRANSAMINASES INCREASED [None]
  - WEIGHT DECREASED [None]
